FAERS Safety Report 11350982 (Version 1)
Quarter: 2015Q3

REPORT INFORMATION
  Report Type: Spontaneous
  Country: US (occurrence: None)
  Receive Date: 20150709
  Receipt Date: 20150709
  Transmission Date: 20151125
  Serious: Yes (Hospitalization)
  Sender: FDA-Public Use
  Company Number: PHEH2014US016348

PATIENT
  Age: 82 Year
  Sex: Male

DRUGS (6)
  1. GABAPENTIN. [Concomitant]
     Active Substance: GABAPENTIN
  2. AMLODIPINE [Concomitant]
     Active Substance: AMLODIPINE BESYLATE
  3. ENALAPRIL MALEATE. [Suspect]
     Active Substance: ENALAPRIL MALEATE
     Indication: PRODUCT USED FOR UNKNOWN INDICATION
  4. GLYBURIDE (GLIBENCLAMIDE) [Concomitant]
     Active Substance: GLYBURIDE
  5. TRAMADOL. [Concomitant]
     Active Substance: TRAMADOL
  6. GLEEVEC [Suspect]
     Active Substance: IMATINIB MESYLATE
     Indication: CHRONIC MYELOID LEUKAEMIA
     Route: 048
     Dates: start: 20140626, end: 201408

REACTIONS (8)
  - Pharyngeal oedema [None]
  - Dyspnoea [None]
  - Angioedema [None]
  - Swollen tongue [None]
  - Increased appetite [None]
  - Swelling face [None]
  - Blood glucose decreased [None]
  - Anaphylactic reaction [None]

NARRATIVE: CASE EVENT DATE: 20140626
